FAERS Safety Report 4290726-5 (Version None)
Quarter: 2004Q1

REPORT INFORMATION
  Report Type: 
  Country: None (occurrence: None)
  Receive Date: 20040206
  Receipt Date: 20040206
  Transmission Date: 20041129
  Serious: Yes (Death)
  Sender: FDA-Public Use
  Company Number: None

PATIENT
  Sex: Female
  Weight: 45.3597 kg

DRUGS (2)
  1. FOSAMAX [Suspect]
     Indication: OSTEOPOROSIS
     Dosage: 10 MG
  2. ANTI-INFLAMMATORY NAPROXEN [Suspect]
     Indication: PAIN
     Dosage: 500 MG/ MID AUGUST
     Dates: start: 20000801

REACTIONS (1)
  - GASTRIC ULCER PERFORATION [None]
